FAERS Safety Report 8036217-7 (Version None)
Quarter: 2012Q1

REPORT INFORMATION
  Report Type: 
  Country: None (occurrence: None)
  Receive Date: 20120111
  Receipt Date: 20120105
  Transmission Date: 20120608
  Serious: Yes (Hospitalization, Other)
  Sender: FDA-Public Use
  Company Number: PHBS2006BR15575

PATIENT
  Sex: Male
  Weight: 74 kg

DRUGS (4)
  1. FORMOTEROL FUMARATE [Suspect]
     Indication: EMPHYSEMA
     Dosage: UNK. TID
  2. FORMOTEROL FUMARATE [Suspect]
     Dosage: 4 TIMES DAILY THE INHALATION WITH EVERY ACTIVE INGREDIENT
  3. BEROTEC [Concomitant]
     Dosage: 10 DRP, UNK
  4. FORMOTEROL FUMARATE [Suspect]
     Dosage: 1 INHALATION WITH EVERY ACTIVE INGREDIENT EVERY 12 HOURS

REACTIONS (10)
  - SKIN CANCER [None]
  - PAIN [None]
  - SCIATICA [None]
  - DRUG INEFFECTIVE [None]
  - PAIN IN EXTREMITY [None]
  - DYSPNOEA [None]
  - DEVICE MALFUNCTION [None]
  - TACHYCARDIA [None]
  - HYPOAESTHESIA [None]
  - AGGRESSION [None]
